FAERS Safety Report 4980986-7 (Version None)
Quarter: 2006Q2

REPORT INFORMATION
  Report Type: 
  Country: None (occurrence: None)
  Receive Date: 20060418
  Receipt Date: 20060329
  Transmission Date: 20061013
  Serious: Yes (Other)
  Sender: FDA-Public Use
  Company Number: US200603007034

PATIENT
  Age: 78 Year
  Sex: Female
  Weight: 61.7 kg

DRUGS (8)
  1. ZYPREXA [Suspect]
     Indication: BIPOLAR DISORDER
     Dosage: 10 MG, DAILY (1/D), ORAL; 10 MG, DAILY (1/D), ORAL; 5 MG, DAILY (1/D), ORAL
     Route: 048
     Dates: start: 19970101, end: 20020101
  2. ZYPREXA [Suspect]
     Indication: BIPOLAR DISORDER
     Dosage: 10 MG, DAILY (1/D), ORAL; 10 MG, DAILY (1/D), ORAL; 5 MG, DAILY (1/D), ORAL
     Route: 048
     Dates: start: 20020101, end: 20050101
  3. ZYPREXA [Suspect]
     Indication: BIPOLAR DISORDER
     Dosage: 10 MG, DAILY (1/D), ORAL; 10 MG, DAILY (1/D), ORAL; 5 MG, DAILY (1/D), ORAL
     Route: 048
     Dates: start: 20050301, end: 20050101
  4. ZYPREXA [Suspect]
     Indication: BIPOLAR DISORDER
     Dosage: 10 MG, DAILY (1/D), ORAL; 10 MG, DAILY (1/D), ORAL; 5 MG, DAILY (1/D), ORAL
     Route: 048
     Dates: start: 20050701
  5. PROZAC [Suspect]
     Indication: BIPOLAR DISORDER
     Dosage: 40 MG, DAILY (1/D), ORAL
     Route: 048
     Dates: start: 19970101, end: 20050101
  6. FLUOXETINE HCL [Concomitant]
  7. SYNTHROID [Concomitant]
  8. LIPITOR [Concomitant]

REACTIONS (10)
  - ABNORMAL BEHAVIOUR [None]
  - BREAST CANCER FEMALE [None]
  - BREAST CANCER RECURRENT [None]
  - BREAST MASS [None]
  - CONFUSIONAL STATE [None]
  - DEMENTIA [None]
  - DYSPNOEA [None]
  - NERVOUSNESS [None]
  - RESPIRATION ABNORMAL [None]
  - TREMOR [None]
